APPROVED DRUG PRODUCT: PINDOLOL
Active Ingredient: PINDOLOL
Strength: 5MG
Dosage Form/Route: TABLET;ORAL
Application: A205415 | Product #001 | TE Code: AB
Applicant: MPP PHARMA LLC
Approved: Jan 13, 2016 | RLD: No | RS: No | Type: RX